FAERS Safety Report 8449132-1 (Version None)
Quarter: 2012Q2

REPORT INFORMATION
  Report Type: 
  Country: None (occurrence: None)
  Receive Date: 20120619
  Receipt Date: 20120613
  Transmission Date: 20120825
  Serious: Yes (Death, Hospitalization, Other)
  Sender: FDA-Public Use
  Company Number: IE-TEVA-335488ISR

PATIENT
  Sex: Male

DRUGS (19)
  1. SEPTRIN FORTE [Concomitant]
     Dosage: 160MGTRIMETOPRIM/800MG SULPHAMETOXAZOLE
  2. ANXICALM [Concomitant]
     Dosage: FREQUENCY: OD PRN
  3. SPIRIVA [Concomitant]
  4. RASILEZ [Concomitant]
     Dosage: 150 MILLIGRAM;
  5. MODURET [Concomitant]
     Dosage: 50 MILLIGRAM;
  6. SINGULAIR [Concomitant]
     Dosage: 10 MILLIGRAM;
  7. EXPUTEX [Concomitant]
  8. DILTIAZEM [Suspect]
     Dosage: 420 MILLIGRAM; 60MG*4MANE AND 60MG*3NOCTE
     Route: 048
     Dates: start: 20120301
  9. SEPTRIN FORTE [Concomitant]
     Dosage: 1600 MILLIGRAM; FREQUENCY: 1 TABLET BD X 3 DAYS.
  10. ATROVENT [Concomitant]
     Dosage: FREQUENCY: QDS
  11. PANTOPRAZOLE [Concomitant]
     Dosage: 40 MILLIGRAM;
  12. NEBIVOLOL TEVA [Concomitant]
     Dosage: 1.25 MILLIGRAM; 1 QUARTER OF A TABLET DAILY
  13. LAXOSE SOLUTION [Concomitant]
  14. SYMBICORT [Concomitant]
     Dosage: 400MCG/12MCG 2 PUFFS BD (1600MCG/48MCG DAILY)
  15. VENTOLIN DISKUS [Concomitant]
  16. FUROSEMIDE [Concomitant]
     Dosage: 20 MILLIGRAM; 1 X MANE
  17. CETIRIZINE HCL [Concomitant]
     Dosage: 10 MILLIGRAM;
  18. CRESTOR [Concomitant]
     Dosage: 10 MILLIGRAM; 1 X NOCTE
  19. SYMBICORT [Concomitant]
     Dosage: 48 MICROGRAM; FREQUENCY: 2 PUFFS BD

REACTIONS (7)
  - RENAL FAILURE [None]
  - OVERDOSE [None]
  - OEDEMA PERIPHERAL [None]
  - PAIN [None]
  - ATRIAL FIBRILLATION [None]
  - DEATH [None]
  - HYPOPNOEA [None]
